FAERS Safety Report 4598920-0 (Version None)
Quarter: 2005Q1

REPORT INFORMATION
  Report Type: 
  Country: None (occurrence: None)
  Receive Date: 20050302
  Receipt Date: 20050214
  Transmission Date: 20050727
  Serious: Yes (Death)
  Sender: FDA-Public Use
  Company Number: 2005-DE-00545GD

PATIENT
  Sex: Female

DRUGS (1)
  1. MORPHINE(MORPHINE) [Suspect]
     Indication: PAIN

REACTIONS (2)
  - IATROGENIC INJURY [None]
  - NARCOTIC INTOXICATION [None]
